FAERS Safety Report 17770364 (Version 1)
Quarter: 2020Q2

REPORT INFORMATION
  Report Type: Spontaneous
  Country: US (occurrence: US)
  Receive Date: 20200512
  Receipt Date: 20200512
  Transmission Date: 20200714
  Serious: Yes (Hospitalization)
  Sender: FDA-Public Use
  Company Number: None

PATIENT
  Sex: Female
  Weight: 70.31 kg

DRUGS (9)
  1. SPIRONOLACTONE. [Concomitant]
     Active Substance: SPIRONOLACTONE
  2. LEXAPRO [Concomitant]
     Active Substance: ESCITALOPRAM OXALATE
  3. NAPROXEN. [Concomitant]
     Active Substance: NAPROXEN
  4. KYLEENA [Suspect]
     Active Substance: LEVONORGESTREL
  5. DEXCOM G6 [Concomitant]
  6. XANAX XR [Concomitant]
     Active Substance: ALPRAZOLAM
  7. TANDEM FSLIM [Concomitant]
  8. ALLEGRA [Concomitant]
     Active Substance: FEXOFENADINE HYDROCHLORIDE
  9. HUMALOG [Concomitant]
     Active Substance: INSULIN LISPRO

REACTIONS (5)
  - Pelvic discomfort [None]
  - Ovarian cyst ruptured [None]
  - Migraine [None]
  - Acne [None]
  - Pain [None]
